FAERS Safety Report 13139592 (Version 1)
Quarter: 2017Q1

REPORT INFORMATION
  Report Type: Spontaneous
  Country: US (occurrence: US)
  Receive Date: 20170123
  Receipt Date: 20170123
  Transmission Date: 20170428
  Serious: No
  Sender: FDA-Public Use
  Company Number: US-REGENERON PHARMACEUTICALS, INC.-2016-21425

PATIENT

DRUGS (6)
  1. EYLEA [Suspect]
     Active Substance: AFLIBERCEPT
     Indication: PRODUCT USED FOR UNKNOWN INDICATION
     Dosage: UNK, OD
     Route: 031
     Dates: start: 20160808
  2. DESIPRAMINE [Concomitant]
     Active Substance: DESIPRAMINE
     Dosage: 100 MG MILLIGRAM(S), BID
     Route: 048
     Dates: start: 201605
  3. TIMOLOL. [Concomitant]
     Active Substance: TIMOLOL
     Indication: OCULAR HYPERTENSION
     Dosage: UNK
     Dates: start: 2012
  4. SYNTHROID [Concomitant]
     Active Substance: LEVOTHYROXINE SODIUM
     Indication: PRODUCT USED FOR UNKNOWN INDICATION
     Dosage: 100 ?G MICROGRAM(S), QD
     Route: 048
     Dates: start: 1994
  5. HYDROCHLOROTHIAZIDE. [Concomitant]
     Active Substance: HYDROCHLOROTHIAZIDE
     Indication: OEDEMA PERIPHERAL
     Dosage: 0.25 MG MILLIGRAM(S), QD
     Route: 048
     Dates: start: 2012
  6. DESIPRAMINE [Concomitant]
     Active Substance: DESIPRAMINE
     Indication: DEPRESSION
     Dosage: 100 MG MILLIGRAM(S), QD
     Route: 048
     Dates: start: 2012, end: 201605

REACTIONS (9)
  - Sensation of foreign body [Unknown]
  - Eye irritation [Not Recovered/Not Resolved]
  - Hot flush [Not Recovered/Not Resolved]
  - Visual acuity reduced [Unknown]
  - Malaise [Unknown]
  - Lacrimation increased [Not Recovered/Not Resolved]
  - Cough [Unknown]
  - Haemoptysis [Recovered/Resolved]
  - Hyperhidrosis [Unknown]

NARRATIVE: CASE EVENT DATE: 2016
